FAERS Safety Report 8119205-1 (Version None)
Quarter: 2012Q1

REPORT INFORMATION
  Report Type: 
  Country: None (occurrence: None)
  Receive Date: 20120207
  Receipt Date: 20120123
  Transmission Date: 20120608
  Serious: Yes (Other)
  Sender: FDA-Public Use
  Company Number: JP-ROCHE-1033342

PATIENT

DRUGS (5)
  1. DOXORUBICIN HCL [Suspect]
     Indication: DIFFUSE LARGE B-CELL LYMPHOMA
  2. VINCRISTINE [Suspect]
     Indication: DIFFUSE LARGE B-CELL LYMPHOMA
  3. CYCLOPHOSPHAMIDE [Suspect]
     Indication: DIFFUSE LARGE B-CELL LYMPHOMA
  4. MABTHERA [Suspect]
     Indication: DIFFUSE LARGE B-CELL LYMPHOMA
  5. PREDNISONE TAB [Suspect]
     Indication: DIFFUSE LARGE B-CELL LYMPHOMA

REACTIONS (14)
  - NAUSEA [None]
  - ANAEMIA [None]
  - MUCOSAL INFLAMMATION [None]
  - CARDIOTOXICITY [None]
  - PULMONARY TOXICITY [None]
  - VOMITING [None]
  - LEUKOPENIA [None]
  - HEPATOTOXICITY [None]
  - INFECTION [None]
  - THROMBOCYTOPENIA [None]
  - PYREXIA [None]
  - CONSTIPATION [None]
  - NEUROTOXICITY [None]
  - NEPHROPATHY TOXIC [None]
